FAERS Safety Report 7751376-9 (Version None)
Quarter: 2011Q3

REPORT INFORMATION
  Report Type: 
  Country: None (occurrence: None)
  Receive Date: 20110914
  Receipt Date: 20110831
  Transmission Date: 20111222
  Serious: Yes (Other)
  Sender: FDA-Public Use
  Company Number: US-BAYER-2011-081838

PATIENT
  Sex: Male

DRUGS (1)
  1. ALKA-SELTZER PLUS DAY,ALKA-SELTZER PLUS NIGHT [Suspect]
     Indication: NASOPHARYNGITIS
     Dosage: 2 DF, ONCE
     Dates: start: 20110822, end: 20110822

REACTIONS (1)
  - ADVERSE EVENT [None]
